FAERS Safety Report 6585006-9 (Version None)
Quarter: 2010Q1

REPORT INFORMATION
  Report Type: 
  Country: None (occurrence: None)
  Receive Date: 20100217
  Receipt Date: 20100208
  Transmission Date: 20100710
  Serious: Yes (Hospitalization)
  Sender: FDA-Public Use
  Company Number: FR-ASTRAZENECA-2010SE06144

PATIENT
  Age: 13677 Day
  Sex: Female

DRUGS (6)
  1. NEXIUM [Suspect]
     Route: 042
     Dates: start: 20091125, end: 20091207
  2. ZOLOFT [Suspect]
     Route: 048
  3. ZOLOFT [Suspect]
     Route: 048
     Dates: start: 20091130, end: 20091209
  4. RISPERDAL [Suspect]
     Route: 048
  5. RISPERDAL [Suspect]
     Route: 048
     Dates: start: 20091204, end: 20091209
  6. METHADONE HCL [Concomitant]
     Route: 065

REACTIONS (2)
  - NEUTROPENIA [None]
  - THROMBOCYTOPENIA [None]
